FAERS Safety Report 7313564-5 (Version None)
Quarter: 2011Q1

REPORT INFORMATION
  Report Type: 
  Country: None (occurrence: None)
  Receive Date: 20110225
  Receipt Date: 20110217
  Transmission Date: 20110831
  Serious: Yes (Other)
  Sender: FDA-Public Use
  Company Number: US-TEVA-261706USA

PATIENT
  Sex: Female

DRUGS (2)
  1. CLARAVIS [Suspect]
     Route: 048
     Dates: start: 20101102, end: 20110104
  2. NUVARING [Concomitant]
     Indication: CONTRACEPTION
     Route: 067
     Dates: end: 20101201

REACTIONS (1)
  - UNINTENDED PREGNANCY [None]
